FAERS Safety Report 5017865-5 (Version None)
Quarter: 2006Q2

REPORT INFORMATION
  Report Type: 
  Country: None (occurrence: None)
  Receive Date: 20060605
  Receipt Date: 20060531
  Transmission Date: 20061013
  Serious: Yes (Death)
  Sender: FDA-Public Use
  Company Number: 2006AP02437

PATIENT
  Age: 36 Year
  Sex: Male

DRUGS (10)
  1. CRESTOR [Suspect]
     Indication: TYPE IIA HYPERLIPIDAEMIA
     Route: 048
     Dates: start: 20051201, end: 20060525
  2. CHOLEBRINE [Suspect]
     Indication: TYPE IIA HYPERLIPIDAEMIA
     Route: 048
     Dates: start: 20051201, end: 20060525
  3. LASIX [Suspect]
     Indication: CARDIAC FAILURE
     Route: 048
     Dates: start: 20051201, end: 20060525
  4. ALDACTONE [Suspect]
     Indication: CARDIAC FAILURE
     Route: 048
     Dates: start: 20051201, end: 20060525
  5. NU-LOTAN [Suspect]
     Indication: CARDIAC FAILURE
     Route: 048
     Dates: start: 20051201, end: 20060525
  6. ARTIST [Suspect]
     Indication: CARDIAC FAILURE
     Route: 048
     Dates: start: 20051201, end: 20060525
  7. PANALDINE [Suspect]
     Indication: ANGINA PECTORIS
     Route: 048
     Dates: start: 20051201, end: 20060525
  8. ISOSORBIDE MONONITRATE [Suspect]
     Indication: ANGINA PECTORIS
     Route: 048
     Dates: start: 20051201, end: 20060525
  9. ASPIRIN [Suspect]
     Indication: ANGINA PECTORIS
     Route: 048
     Dates: start: 20051201, end: 20060525
  10. GASTER D [Suspect]
     Indication: REFLUX OESOPHAGITIS
     Route: 048
     Dates: start: 20051201, end: 20060525

REACTIONS (1)
  - ACUTE MYOCARDIAL INFARCTION [None]
